FAERS Safety Report 9301655 (Version 1)
Quarter: 2012Q4

REPORT INFORMATION
  Report Type: Spontaneous
  Country: IT (occurrence: None)
  Receive Date: 20121109
  Receipt Date: 20121109
  Transmission Date: 20130627
  Serious: Yes (Other)
  Sender: FDA-Public Use
  Company Number: 2011S1000631

PATIENT
  Age: 55 Year
  Sex: Male

DRUGS (1)
  1. CUBICIN (DAPTOMYCIN) [Suspect]

REACTIONS (4)
  - Drug-induced liver injury [None]
  - Gastritis [None]
  - Eosinophilic pneumonia [None]
  - Rash [None]
